FAERS Safety Report 8019286-X (Version None)
Quarter: 2011Q4

REPORT INFORMATION
  Report Type: 
  Country: None (occurrence: None)
  Receive Date: 20111229
  Receipt Date: 20111214
  Transmission Date: 20120403
  Serious: Yes (Hospitalization, Other)
  Sender: FDA-Public Use
  Company Number: CIP11003099

PATIENT
  Age: 76 Year
  Sex: Female

DRUGS (4)
  1. FOSAMAX [Suspect]
     Dosage: 10 MG DAILY, ORAL
     Route: 048
     Dates: start: 19951229, end: 20020101
  2. ACTONEL [Suspect]
     Dosage: 35 MG ONCE WEEKLY, ORAL
     Route: 048
     Dates: start: 20021030, end: 20021101
  3. DIDRONEL [Suspect]
     Indication: OSTEOPOROSIS POSTMENOPAUSAL
     Dosage: ORAL
     Route: 048
     Dates: end: 19951229
  4. BONIVA [Suspect]
     Dosage: 150 MA ONCE MONTHLY, ORAL
     Route: 048
     Dates: start: 20051229, end: 20090401

REACTIONS (16)
  - OEDEMA PERIPHERAL [None]
  - PAIN IN EXTREMITY [None]
  - MUSCULAR WEAKNESS [None]
  - HAEMATOMA [None]
  - FRACTURE DISPLACEMENT [None]
  - ABDOMINAL DISCOMFORT [None]
  - GAIT DISTURBANCE [None]
  - MYOPATHY [None]
  - HYPERPARATHYROIDISM PRIMARY [None]
  - PAIN [None]
  - PARATHYROID TUMOUR BENIGN [None]
  - FALL [None]
  - ANAEMIA POSTOPERATIVE [None]
  - FEMUR FRACTURE [None]
  - LOW TURNOVER OSTEOPATHY [None]
  - STRESS FRACTURE [None]
